FAERS Safety Report 8557141-7 (Version None)
Quarter: 2012Q3

REPORT INFORMATION
  Report Type: 
  Country: None (occurrence: None)
  Receive Date: 20120801
  Receipt Date: 20120725
  Transmission Date: 20120928
  Serious: Yes (Hospitalization, Other)
  Sender: FDA-Public Use
  Company Number: SE-PFIZER INC-2012167482

PATIENT
  Age: 53 Year
  Sex: Female

DRUGS (16)
  1. OXYCONTIN [Concomitant]
     Dosage: UNK
  2. ALENDRONAT ACCORD [Concomitant]
     Dosage: UNK
  3. DAKTACORT [Concomitant]
     Dosage: UNK
  4. ATARAX [Concomitant]
     Dosage: UNK
  5. DIAZEPAM [Concomitant]
     Dosage: UNK
  6. PREDNISOLONE [Concomitant]
     Dosage: UNK
  7. SIMVASTATIN [Concomitant]
     Dosage: UNK
  8. LACTULOSE [Concomitant]
     Dosage: UNK
  9. INDERAL LA [Concomitant]
     Dosage: UNK
  10. FRAGMIN [Concomitant]
     Dosage: UNK
  11. SOLU-CORTEF [Suspect]
     Dosage: UNK
     Route: 042
     Dates: start: 20120412
  12. ALVEDON [Concomitant]
     Dosage: UNK
  13. MOVIPREP [Concomitant]
     Dosage: UNK
  14. OMEPRAZOLE [Concomitant]
     Dosage: UNK
  15. KALCIPOS-D [Concomitant]
     Dosage: UNK
  16. ZOLPIDEM TATRATE [Concomitant]
     Dosage: UNK

REACTIONS (4)
  - LEUKOCYTOSIS [None]
  - HAEMATOCHEZIA [None]
  - C-REACTIVE PROTEIN INCREASED [None]
  - DEEP VEIN THROMBOSIS [None]
